FAERS Safety Report 7061648-1 (Version None)
Quarter: 2010Q4

REPORT INFORMATION
  Report Type: 
  Country: None (occurrence: None)
  Receive Date: 20101026
  Receipt Date: 20101015
  Transmission Date: 20110411
  Serious: Yes (Other)
  Sender: FDA-Public Use
  Company Number: US-SANOFI-AVENTIS-2010SA064180

PATIENT
  Age: 86 Year
  Sex: Female
  Weight: 49 kg

DRUGS (10)
  1. PLAVIX [Suspect]
     Indication: MYOCARDIAL INFARCTION
     Route: 048
     Dates: start: 20090101
  2. PLAVIX [Suspect]
     Indication: STENT PLACEMENT
     Route: 048
     Dates: start: 20090101
  3. ASPIRIN [Concomitant]
     Indication: MYOCARDIAL INFARCTION
     Route: 048
     Dates: start: 20090101
  4. ASPIRIN [Concomitant]
     Indication: STENT PLACEMENT
     Route: 048
     Dates: start: 20090101
  5. SIMVASTATIN [Concomitant]
  6. BENAZEPRIL HYDROCHLORIDE [Concomitant]
  7. HYDRALAZINE [Concomitant]
  8. TOPROL-XL [Concomitant]
  9. ZOLOFT [Concomitant]
     Indication: INSOMNIA
  10. HYDROCHLOROTHIAZIDE [Concomitant]

REACTIONS (5)
  - CONTUSION [None]
  - DIZZINESS [None]
  - FALL [None]
  - HEADACHE [None]
  - WOUND HAEMORRHAGE [None]
